FAERS Safety Report 8344984-8 (Version None)
Quarter: 2012Q2

REPORT INFORMATION
  Report Type: 
  Country: None (occurrence: None)
  Receive Date: 20120508
  Receipt Date: 20120424
  Transmission Date: 20120825
  Serious: Yes (Other)
  Sender: FDA-Public Use
  Company Number: US-ELI_LILLY_AND_COMPANY-US201204009037

PATIENT
  Age: 29 Year
  Sex: Female

DRUGS (4)
  1. MULTI-VITAMIN [Concomitant]
  2. LAMICTAL [Concomitant]
  3. CYMBALTA [Suspect]
     Indication: AFFECTIVE DISORDER
     Dosage: 60 MG, BID
  4. FLUOXETINE HCL [Concomitant]
     Dosage: UNK

REACTIONS (14)
  - INSOMNIA [None]
  - DIARRHOEA [None]
  - MENTAL IMPAIRMENT [None]
  - CONFUSIONAL STATE [None]
  - COLD SWEAT [None]
  - ARTHRALGIA [None]
  - HEADACHE [None]
  - DRUG WITHDRAWAL SYNDROME [None]
  - NAUSEA [None]
  - SUICIDAL IDEATION [None]
  - DIZZINESS [None]
  - INTENTIONAL DRUG MISUSE [None]
  - DEPRESSION [None]
  - MYALGIA [None]
